FAERS Safety Report 15746394 (Version 2)
Quarter: 2019Q2

REPORT INFORMATION
  Report Type: Spontaneous
  Country: US (occurrence: US)
  Receive Date: 20181220
  Receipt Date: 20190422
  Transmission Date: 20190711
  Serious: Yes (Other)
  Sender: FDA-Public Use
  Company Number: US-SA-2018SA342009

PATIENT
  Age: 47 Year
  Sex: Female
  Weight: 81.18 kg

DRUGS (5)
  1. ADRIAMYCIN [Concomitant]
     Active Substance: DOXORUBICIN HYDROCHLORIDE
  2. TAXOTERE [Suspect]
     Active Substance: DOCETAXEL
     Indication: BREAST CANCER FEMALE
     Dosage: UNK UNK, QOW
     Route: 042
     Dates: start: 20090112, end: 20090112
  3. NEOSAR [Concomitant]
     Active Substance: CYCLOPHOSPHAMIDE
  4. TAXOL [Concomitant]
     Active Substance: PACLITAXEL
  5. TAXOTERE [Suspect]
     Active Substance: DOCETAXEL
     Dosage: UNK UNK, QOW
     Route: 042
     Dates: start: 20090715, end: 20090715

REACTIONS (3)
  - Emotional distress [Unknown]
  - Psychological trauma [Unknown]
  - Alopecia [Not Recovered/Not Resolved]
